FAERS Safety Report 7356765-2 (Version None)
Quarter: 2011Q1

REPORT INFORMATION
  Report Type: 
  Country: None (occurrence: None)
  Receive Date: 20110316
  Receipt Date: 20110308
  Transmission Date: 20110831
  Serious: Yes (Death)
  Sender: FDA-Public Use
  Company Number: JP-AMGEN-JPNCT2011013095

PATIENT
  Age: 67 Year
  Sex: Male
  Weight: 59 kg

DRUGS (14)
  1. PANITUMUMAB [Suspect]
     Indication: COLORECTAL CANCER
     Dosage: 6 MG/KG, Q2WK
     Route: 041
     Dates: start: 20101028, end: 20110203
  2. IRINOTECAN HYDROCHLORIDE [Concomitant]
     Indication: COLORECTAL CANCER
     Dosage: 100 MG, Q2WK
     Route: 041
     Dates: start: 20101028, end: 20110203
  3. BUSCOPAN [Concomitant]
     Dosage: UNK
     Route: 042
  4. CALCIUM LEVOFOLINATE [Concomitant]
     Indication: COLORECTAL CANCER
     Route: 041
     Dates: start: 20101028
  5. CALCIUM LEVOFOLINATE [Concomitant]
     Route: 041
     Dates: start: 20101028, end: 20110203
  6. FLUOROURACIL [Concomitant]
     Route: 041
     Dates: start: 20101028, end: 20110203
  7. GLYBURIDE [Concomitant]
     Dosage: UNK
     Route: 048
  8. GLUFAST [Concomitant]
     Dosage: UNK
     Route: 048
  9. CORTICOSTEROIDS [Concomitant]
     Indication: PROPHYLAXIS
     Dosage: UNK
     Route: 065
  10. IRINOTECAN HYDROCHLORIDE [Concomitant]
     Route: 041
     Dates: start: 20101028, end: 20110203
  11. FLUOROURACIL [Concomitant]
     Indication: COLORECTAL CANCER
     Route: 040
     Dates: start: 20101028, end: 20110203
  12. NELBIS [Concomitant]
     Dosage: UNK
     Route: 048
  13. GLUCOBAY [Concomitant]
     Dosage: UNK
     Route: 048
  14. ALOXI [Concomitant]
     Dosage: UNK
     Route: 042

REACTIONS (2)
  - AORTIC DISSECTION [None]
  - DERMATITIS ACNEIFORM [None]
